FAERS Safety Report 16924795 (Version 1)
Quarter: 2019Q4

REPORT INFORMATION
  Report Type: Spontaneous
  Country: US (occurrence: US)
  Receive Date: 20191015
  Receipt Date: 20191015
  Transmission Date: 20200122
  Serious: Yes (Other)
  Sender: FDA-Public Use
  Company Number: None

PATIENT
  Age: 64 Year
  Sex: Female

DRUGS (1)
  1. ORENCIA [Suspect]
     Active Substance: ABATACEPT
     Indication: RHEUMATOID ARTHRITIS
     Dosage: ?          OTHER FREQUENCY:ONCE EVERY 7 DAYS;?
     Route: 058
     Dates: start: 20190820

REACTIONS (4)
  - Anxiety [None]
  - Insomnia [None]
  - Weight increased [None]
  - Pain in extremity [None]

NARRATIVE: CASE EVENT DATE: 20191015
